FAERS Safety Report 8074926-4 (Version None)
Quarter: 2012Q1

REPORT INFORMATION
  Report Type: 
  Country: None (occurrence: None)
  Receive Date: 20120127
  Receipt Date: 20120113
  Transmission Date: 20120608
  Serious: Yes (Hospitalization)
  Sender: FDA-Public Use
  Company Number: BR-AMGEN-BRASP2012003797

PATIENT
  Age: 53 Year
  Sex: Male
  Weight: 69.1 kg

DRUGS (12)
  1. SPIRONOLACTONE [Concomitant]
     Dosage: 25 MG, 1X/DAY
  2. BUSONID [Concomitant]
     Dosage: UNK
     Dates: start: 20000116
  3. INDOCIN [Concomitant]
     Dosage: 25 MG, 2X/DAY
  4. WARFARIN SODIUM [Concomitant]
     Indication: ANTICOAGULANT THERAPY
     Dosage: 5 MG, 1X/DAY
     Dates: start: 20100701
  5. BUDESONIDE [Concomitant]
     Dosage: UNK
  6. AMIODARONE HYDROCHLORIDE [Suspect]
     Indication: CARDIAC DISORDER
     Dosage: UNK
     Dates: start: 20100701, end: 20111201
  7. CARVEDILOL [Concomitant]
     Indication: CARDIAC DISORDER
     Dosage: 25 MG, 3X/DAY
     Dates: start: 20100701
  8. ENBREL [Suspect]
     Indication: ANKYLOSING SPONDYLITIS
     Dosage: 25 MG, 1X/WEEK
     Route: 058
     Dates: start: 20090410, end: 20100701
  9. CAPTOPRIL [Concomitant]
     Indication: BLOOD PRESSURE ABNORMAL
     Dosage: 25 MG, 3X/DAY
     Dates: start: 20100701
  10. OMEPRAZOLE [Concomitant]
     Dosage: UNK
  11. PERIDAL                            /00498201/ [Concomitant]
     Indication: HYPERSENSITIVITY
     Dosage: 2 TABLETS AFTER MEAL
     Dates: start: 20120112
  12. FUROSEMIDE [Concomitant]
     Dosage: 40 MG, 1X/DAY

REACTIONS (4)
  - CARDIAC DISORDER [None]
  - ASTHMA [None]
  - ATRIAL FIBRILLATION [None]
  - CORNEAL DISORDER [None]
